FAERS Safety Report 6243923-3 (Version None)
Quarter: 2009Q2

REPORT INFORMATION
  Report Type: 
  Country: None (occurrence: None)
  Receive Date: 20090624
  Receipt Date: 20090615
  Transmission Date: 20091009
  Serious: Yes (Other)
  Sender: FDA-Public Use
  Company Number: US-AMGEN-QUU342591

PATIENT
  Sex: Female
  Weight: 56.8 kg

DRUGS (3)
  1. ENBREL [Suspect]
     Indication: RHEUMATOID ARTHRITIS
     Route: 058
     Dates: start: 20071001
  2. METHOTREXATE [Concomitant]
     Dates: start: 20060101, end: 20090101
  3. FOLIC ACID [Concomitant]
     Dates: start: 20060101, end: 20090101

REACTIONS (3)
  - CARDIAC DISORDER [None]
  - PALPITATIONS [None]
  - STRESS [None]
